FAERS Safety Report 7928635-X (Version None)
Quarter: 2011Q4

REPORT INFORMATION
  Report Type: 
  Country: None (occurrence: None)
  Receive Date: 20111118
  Receipt Date: 20111110
  Transmission Date: 20120403
  Serious: Yes (Other)
  Sender: FDA-Public Use
  Company Number: US-AMGEN-USASP2011059180

PATIENT
  Sex: Male

DRUGS (3)
  1. XGEVA [Suspect]
     Indication: METASTASES TO BONE
     Dosage: 120 MG, Q4WK
  2. VITAMIN D [Concomitant]
  3. CALCIUM [Concomitant]

REACTIONS (2)
  - HYPERCALCAEMIA OF MALIGNANCY [None]
  - VITAMIN D INCREASED [None]
